FAERS Safety Report 18766979 (Version 1)
Quarter: 2021Q1

REPORT INFORMATION
  Report Type: Spontaneous
  Country: DE (occurrence: DE)
  Receive Date: 20210121
  Receipt Date: 20210121
  Transmission Date: 20210419
  Serious: Yes (Hospitalization, Other)
  Sender: FDA-Public Use
  Company Number: DE-STRIDES ARCOLAB LIMITED-2020SP010195

PATIENT
  Age: 47 Year
  Sex: Female

DRUGS (5)
  1. FAMPYRA [Suspect]
     Active Substance: DALFAMPRIDINE
     Indication: HEREDITARY ATAXIA
     Dosage: 20 MILLIGRAM DAILY
     Route: 065
  2. ACETYLLEUCINE [Concomitant]
     Active Substance: ACETYLLEUCINE
     Indication: HEREDITARY ATAXIA
     Dosage: UNK
     Route: 065
  3. FAMPYRA [Suspect]
     Active Substance: DALFAMPRIDINE
     Dosage: 20 MILLIGRAM DAILY
     Route: 065
  4. ACETAZOLAMIDE. [Suspect]
     Active Substance: ACETAZOLAMIDE
     Indication: HEREDITARY ATAXIA
     Dosage: UNK (250?500MG DAILY)
     Route: 065
  5. FAMPYRA [Suspect]
     Active Substance: DALFAMPRIDINE
     Dosage: UNK, REDUCED FAMPRIDINE TREATMENT
     Route: 065

REACTIONS (3)
  - Renal impairment [Unknown]
  - Paraesthesia [Unknown]
  - Drug ineffective for unapproved indication [Unknown]
